FAERS Safety Report 5217954-6 (Version None)
Quarter: 2007Q1

REPORT INFORMATION
  Report Type: 
  Country: None (occurrence: None)
  Receive Date: 20061130
  Receipt Date: 20060807
  Transmission Date: 20070707
  Serious: Yes (Hospitalization)
  Sender: FDA-Public Use
  Company Number: US200607001061

PATIENT
  Sex: Male
  Weight: 93.4 kg

DRUGS (2)
  1. ZYPREXA [Suspect]
     Indication: DRUG USE FOR UNKNOWN INDICATION
     Dosage: 7.5 MG, UNK, UNK
     Dates: start: 20000708, end: 20030201
  2. ARIPIPRAZOLE [Concomitant]

REACTIONS (1)
  - DIABETES MELLITUS [None]
